FAERS Safety Report 7627354-7 (Version None)
Quarter: 2011Q3

REPORT INFORMATION
  Report Type: 
  Country: None (occurrence: None)
  Receive Date: 20110721
  Receipt Date: 20110711
  Transmission Date: 20111222
  Serious: Yes (Hospitalization)
  Sender: FDA-Public Use
  Company Number: US-ELI_LILLY_AND_COMPANY-US201005003668

PATIENT
  Sex: Female

DRUGS (4)
  1. FORTEO [Suspect]
     Dosage: 20 UG, DAILY (1/D)
     Route: 058
  2. VITAMIN D [Concomitant]
  3. FORTEO [Suspect]
     Indication: OSTEOPOROSIS
     Dosage: 20 UG, DAILY (1/D)
     Route: 058
     Dates: start: 20091001
  4. CALCIUM CARBONATE [Concomitant]

REACTIONS (6)
  - VOMITING [None]
  - MALAISE [None]
  - DEHYDRATION [None]
  - FATIGUE [None]
  - NAUSEA [None]
  - HIP ARTHROPLASTY [None]
